FAERS Safety Report 23977341 (Version 1)
Quarter: 2024Q2

REPORT INFORMATION
  Report Type: Spontaneous
  Country: CA (occurrence: CA)
  Receive Date: 20240614
  Receipt Date: 20240614
  Transmission Date: 20240716
  Serious: Yes (Life-Threatening, Hospitalization)
  Sender: FDA-Public Use
  Company Number: CA-MYLANLABS-2024M1054334

PATIENT
  Age: 15 Year
  Sex: Female
  Weight: 57 kg

DRUGS (12)
  1. CLOZAPINE [Suspect]
     Active Substance: CLOZAPINE
     Indication: Schizophrenia
     Dosage: 87.5 MILLIGRAM, QD ( 1 EVERY 1 DAYS)
     Route: 048
  2. ACETAMINOPHEN [Concomitant]
     Active Substance: ACETAMINOPHEN
     Dosage: UNK
     Route: 065
  3. BENZOYL PEROXIDE [Concomitant]
     Active Substance: BENZOYL PEROXIDE
     Dosage: UNK
     Route: 065
  4. BENZTROPINE [Concomitant]
     Active Substance: BENZTROPINE
     Dosage: UNK
     Route: 065
  5. CLINDAMYCIN [Concomitant]
     Active Substance: CLINDAMYCIN
     Dosage: UNK
     Route: 065
  6. DIPHENHYDRAMINE [Concomitant]
     Active Substance: DIPHENHYDRAMINE
     Dosage: UNK
     Route: 065
  7. IBUPROFEN [Concomitant]
     Active Substance: IBUPROFEN
     Dosage: UNK
     Route: 065
  8. LORAZEPAM [Concomitant]
     Active Substance: LORAZEPAM
     Dosage: UNK
     Route: 065
  9. OLANZAPINE [Concomitant]
     Active Substance: OLANZAPINE
     Dosage: UNK
     Route: 065
  10. POLYETHYLENE GLYCOL [Concomitant]
     Active Substance: POLYETHYLENE GLYCOL
     Dosage: UNK
     Route: 065
  11. PROPRANOLOL [Concomitant]
     Active Substance: PROPRANOLOL HYDROCHLORIDE
     Dosage: UNK
     Route: 065
  12. VALPROIC ACID [Concomitant]
     Active Substance: VALPROIC ACID
     Dosage: UNK
     Route: 065

REACTIONS (10)
  - Back pain [Recovered/Resolved]
  - Diastolic dysfunction [Recovered/Resolved]
  - Face oedema [Recovered/Resolved]
  - Rhinorrhoea [Recovered/Resolved]
  - Troponin increased [Recovered/Resolved]
  - Rash maculo-papular [Recovered/Resolved]
  - Myocarditis [Recovered/Resolved]
  - Diarrhoea [Recovered/Resolved]
  - Pyrexia [Recovered/Resolved]
  - Off label use [Unknown]
